FAERS Safety Report 7995246-X (Version None)
Quarter: 2011Q4

REPORT INFORMATION
  Report Type: 
  Country: None (occurrence: None)
  Receive Date: 20111220
  Receipt Date: 20111220
  Transmission Date: 20120403
  Serious: Yes (Other)
  Sender: FDA-Public Use
  Company Number: None

PATIENT
  Age: 55 Year
  Sex: Male

DRUGS (5)
  1. LIDOCAINE JELLY [Concomitant]
  2. DECADRON [Concomitant]
  3. ULTRAVIST 150 [Suspect]
     Indication: SOFT TISSUE DISORDER
     Dosage: 100 ML
     Route: 042
     Dates: start: 20111206, end: 20111206
  4. ULTRAVIST 150 [Suspect]
     Indication: SCAN WITH CONTRAST
     Dosage: 100 ML
     Route: 042
     Dates: start: 20111206, end: 20111206
  5. AMOXICILLIN [Concomitant]

REACTIONS (2)
  - SNEEZING [None]
  - PRURITUS [None]
